FAERS Safety Report 5611981-2 (Version None)
Quarter: 2008Q1

REPORT INFORMATION
  Report Type: 
  Country: None (occurrence: None)
  Receive Date: 20080111
  Receipt Date: 20070727
  Transmission Date: 20080703
  Serious: Yes (Other)
  Sender: FDA-Public Use
  Company Number: HQWYE105908MAY03

PATIENT
  Age: 64 Year
  Sex: Female

DRUGS (1)
  1. PREMPRO [Suspect]
     Dosage: ORAL
     Route: 048
     Dates: start: 19970101, end: 20010101

REACTIONS (4)
  - BREAST CANCER FEMALE [None]
  - CEREBROVASCULAR ACCIDENT [None]
  - PAIN [None]
  - UNEVALUABLE EVENT [None]
